FAERS Safety Report 18264538 (Version 5)
Quarter: 2021Q1

REPORT INFORMATION
  Report Type: Spontaneous
  Country: US (occurrence: US)
  Receive Date: 20200914
  Receipt Date: 20210108
  Transmission Date: 20210419
  Serious: No
  Sender: FDA-Public Use
  Company Number: US-PFIZER INC-2020353431

PATIENT
  Age: 55 Year
  Sex: Male
  Weight: 99 kg

DRUGS (9)
  1. VITAMIN D2 [Concomitant]
     Active Substance: ERGOCALCIFEROL
     Dosage: UNK
  2. ZOLPIDEM TARTRATE. [Concomitant]
     Active Substance: ZOLPIDEM TARTRATE
     Dosage: UNK
  3. IBRANCE [Suspect]
     Active Substance: PALBOCICLIB
     Indication: CONNECTIVE TISSUE NEOPLASM
     Dosage: 125 MG, 1X/DAY
     Route: 048
     Dates: start: 20200826
  4. IBRANCE [Suspect]
     Active Substance: PALBOCICLIB
     Indication: BREAST CANCER
     Dosage: 125 MG, CYCLIC (1 DAILY FOR 21 DAYS)
     Route: 048
     Dates: start: 20200826
  5. LISINOPRIL. [Concomitant]
     Active Substance: LISINOPRIL
     Dosage: UNK
  6. ALLOPURINOL. [Concomitant]
     Active Substance: ALLOPURINOL
     Dosage: UNK
  7. CIPROFLOXACIN. [Concomitant]
     Active Substance: CIPROFLOXACIN
     Dosage: UNK
  8. POTASSIUM CITRATE CITRIC ACID [Concomitant]
     Dosage: UNK
  9. SLEEP AID [DIPHENHYDRAMINE HYDROCHLORIDE] [Concomitant]
     Dosage: UNK

REACTIONS (7)
  - Asthenia [Unknown]
  - Hyperaesthesia teeth [Unknown]
  - Impaired healing [Unknown]
  - Dysgeusia [Unknown]
  - Neoplasm progression [Unknown]
  - Nausea [Unknown]
  - Urinary tract infection [Unknown]

NARRATIVE: CASE EVENT DATE: 2020
